FAERS Safety Report 17366646 (Version 3)
Quarter: 2025Q4

REPORT INFORMATION
  Report Type: Spontaneous
  Country: US (occurrence: US)
  Receive Date: 20200204
  Receipt Date: 20251111
  Transmission Date: 20260117
  Serious: No
  Sender: VERTEX
  Company Number: US-VERTEX PHARMACEUTICALS-2020-001316

PATIENT
  Sex: Male
  Weight: 79 kg

DRUGS (19)
  1. SYMDEKO [Suspect]
     Active Substance: IVACAFTOR\TEZACAFTOR
     Indication: Cystic fibrosis
     Dosage: 100MG TEZACAFTOR/150MG IVACAFTOR; 150MG IVACAFTOR, BID
     Route: 048
     Dates: start: 20180411, end: 20200129
  2. TYLENOL [Suspect]
     Active Substance: ACETAMINOPHEN
     Indication: Product used for unknown indication
     Route: 065
  3. ALBUTEROL [Concomitant]
     Active Substance: ALBUTEROL
     Dosage: 2-4 PUFFS BID, EVERY 4 HOURS AS NEEDED
  4. SODIUM CHLORIDE [Concomitant]
     Active Substance: SODIUM CHLORIDE
  5. Cialis diario [Concomitant]
     Dosage: 1 DOSAGE FORM, QD
     Route: 048
  6. HUMALOG [Concomitant]
     Active Substance: INSULIN LISPRO
     Dosage: 1:20 CARB RATIO WITH MEALS AND SNACK
  7. KLOR-CON [Concomitant]
     Active Substance: POTASSIUM CHLORIDE
     Dosage: 1 DOSAGE FORM, QD WITH FUROSEMIDE
  8. LANTUS [Concomitant]
     Active Substance: INSULIN GLARGINE
     Dosage: 100 UNITS/ML, 18 IN AM AND 12 IN PM
     Route: 058
  9. MIRALAX [Concomitant]
     Active Substance: POLYETHYLENE GLYCOL 3350
     Dosage: 17 GRAM, QD
     Route: 048
  10. NUVIGIL [Concomitant]
     Active Substance: ARMODAFINIL
     Dosage: 1 DOSAGE FORM, QD
     Route: 048
  11. SODIUM CHLORIDE [Concomitant]
     Active Substance: SODIUM CHLORIDE
     Dosage: 4 MILLILITER, BID
  12. SYMBICORT [Concomitant]
     Active Substance: BUDESONIDE\FORMOTEROL FUMARATE DIHYDRATE
     Dosage: 2 DOSAGE FORM, BID
  13. ZENPEP [Concomitant]
     Active Substance: PANCRELIPASE AMYLASE\PANCRELIPASE LIPASE\PANCRELIPASE PROTEASE
     Dosage: 5-7 CAPS WITH MEALS, 2-3 WITH SNACKS TID
  14. BUDESONIDE [Concomitant]
     Active Substance: BUDESONIDE
  15. FUROSEMIDE [Concomitant]
     Active Substance: FUROSEMIDE
     Route: 048
  16. MELOXICAM [Concomitant]
     Active Substance: MELOXICAM
     Dosage: 15 MG TABLET
     Route: 048
  17. MONTELUKAST [Concomitant]
     Active Substance: MONTELUKAST
     Dosage: 10 MG
     Route: 048
  18. OXYCODONE [Concomitant]
     Active Substance: OXYCODONE
     Dosage: 5 MG
     Route: 048
  19. PULMOZYME [Concomitant]
     Active Substance: DORNASE ALFA

REACTIONS (1)
  - Hepatic enzyme increased [Recovered/Resolved]
